FAERS Safety Report 23090913 (Version 1)
Quarter: 2023Q4

REPORT INFORMATION
  Report Type: Spontaneous
  Country: US (occurrence: US)
  Receive Date: 20231020
  Receipt Date: 20231020
  Transmission Date: 20240110
  Serious: Yes (Hospitalization)
  Sender: FDA-Public Use
  Company Number: US-SPECGX-T202302030

PATIENT
  Age: 19 Year
  Sex: Male

DRUGS (2)
  1. LISDEXAMFETAMINE DIMESYLATE [Suspect]
     Active Substance: LISDEXAMFETAMINE DIMESYLATE
     Indication: Attention deficit hyperactivity disorder
     Dosage: UNK
     Route: 065
  2. NICOTINE [Suspect]
     Active Substance: NICOTINE
     Indication: Product used for unknown indication
     Dosage: UNK (E-CIGARETTES)
     Route: 065

REACTIONS (10)
  - Pneumomediastinum [Unknown]
  - Pneumothorax [Unknown]
  - Electrocardiogram QRS complex shortened [Unknown]
  - Leukocytosis [Unknown]
  - Chest discomfort [Unknown]
  - Sinus tachycardia [Unknown]
  - Palpitations [Unknown]
  - Blood pressure systolic increased [Unknown]
  - Dizziness [Unknown]
  - Anxiety [Unknown]
